FAERS Safety Report 14588377 (Version 3)
Quarter: 2018Q2

REPORT INFORMATION
  Report Type: Spontaneous
  Country: PL (occurrence: PL)
  Receive Date: 20180301
  Receipt Date: 20180420
  Transmission Date: 20180711
  Serious: Yes (Hospitalization, Other)
  Sender: FDA-Public Use
  Company Number: PL-VALIDUS PHARMACEUTICALS LLC-PL-2018VAL000423

PATIENT
  Age: 62 Year
  Sex: Male

DRUGS (3)
  1. FUROSEMIDE. [Suspect]
     Active Substance: FUROSEMIDE
     Indication: CARDIAC FAILURE
     Dosage: UNK
     Route: 042
  2. DOPAMINE [Suspect]
     Active Substance: DOPAMINE\DOPAMINE HYDROCHLORIDE
     Indication: CARDIAC FAILURE CHRONIC
     Dosage: 3 ML, EVERY HOUR
     Route: 065
  3. TORASEMIDE [Suspect]
     Active Substance: TORSEMIDE
     Indication: CARDIAC FAILURE
     Dosage: UNK
     Route: 042

REACTIONS (8)
  - General physical health deterioration [Recovering/Resolving]
  - Urine output decreased [Unknown]
  - Anuria [Recovering/Resolving]
  - Drug ineffective [Unknown]
  - Dyspnoea at rest [Unknown]
  - Oedema peripheral [Unknown]
  - Hypoperfusion [Unknown]
  - Drug effect incomplete [Unknown]
